FAERS Safety Report 17947526 (Version 1)
Quarter: 2020Q2

REPORT INFORMATION
  Report Type: Spontaneous
  Country: US (occurrence: US)
  Receive Date: 20200625
  Receipt Date: 20200625
  Transmission Date: 20200714
  Serious: Yes (Hospitalization)
  Sender: FDA-Public Use
  Company Number: None

PATIENT
  Sex: Male

DRUGS (24)
  1. DEXAMETHASON [Concomitant]
     Active Substance: DEXAMETHASONE
  2. OMEPRAZOLE. [Concomitant]
     Active Substance: OMEPRAZOLE
  3. POT CHLORIDE [Concomitant]
     Active Substance: POTASSIUM CHLORIDE
  4. AMLODIPINE [Concomitant]
     Active Substance: AMLODIPINE BESYLATE
  5. AZITHROMYCIN ANHYDROUS. [Concomitant]
     Active Substance: AZITHROMYCIN ANHYDROUS
  6. CLOBAZAM. [Concomitant]
     Active Substance: CLOBAZAM
  7. CYPROHEPTAD [Concomitant]
  8. TOBRAMYCIN  300MG /5ML 20ML [Suspect]
     Active Substance: TOBRAMYCIN
     Indication: CYSTIC FIBROSIS
     Route: 055
     Dates: start: 20191031
  9. ACETAMINOPHE [Concomitant]
  10. SODIUM CHLOR NEB 7% [Concomitant]
  11. CREON [Concomitant]
     Active Substance: PANCRELIPASE AMYLASE\PANCRELIPASE LIPASE\PANCRELIPASE PROTEASE
  12. ENOXAPARIN [Concomitant]
     Active Substance: ENOXAPARIN
  13. IBUPROFEN. [Concomitant]
     Active Substance: IBUPROFEN
  14. BUDESONIDE. [Concomitant]
     Active Substance: BUDESONIDE
  15. PULMOZYME [Concomitant]
     Active Substance: DORNASE ALFA
  16. RISPERIDONE. [Concomitant]
     Active Substance: RISPERIDONE
  17. SENNA [Concomitant]
     Active Substance: SENNA LEAF\SENNOSIDES\SENNOSIDES A AND B
  18. VENTOLIN HFA [Concomitant]
     Active Substance: ALBUTEROL SULFATE
  19. BUMETANIDE. [Concomitant]
     Active Substance: BUMETANIDE
  20. MELATONIN [Concomitant]
     Active Substance: MELATONIN
  21. SPIRONO/HCTZ [Concomitant]
  22. TUMS EX [Concomitant]
     Active Substance: CALCIUM CARBONATE
  23. LORATADINE. [Concomitant]
     Active Substance: LORATADINE
  24. PHYTONADIONE. [Concomitant]
     Active Substance: PHYTONADIONE

REACTIONS (2)
  - Tic [None]
  - Fluid overload [None]
